FAERS Safety Report 24551635 (Version 2)
Quarter: 2024Q4

REPORT INFORMATION
  Report Type: Report from Study
  Country: US (occurrence: US)
  Receive Date: 20241026
  Receipt Date: 20241107
  Transmission Date: 20250114
  Serious: Yes (Other)
  Sender: ABBVIE
  Company Number: US-ABBVIE-5975630

PATIENT
  Age: 68 Year
  Sex: Male
  Weight: 89.811 kg

DRUGS (3)
  1. RINVOQ [Suspect]
     Active Substance: UPADACITINIB
     Indication: Rheumatoid arthritis
     Dosage: FORM STRENGTH 15 MILLIGRAM
     Route: 048
     Dates: start: 20190601
  2. ATORVASTATIN [Concomitant]
     Active Substance: ATORVASTATIN
     Indication: Blood cholesterol
  3. LOSARTAN [Concomitant]
     Active Substance: LOSARTAN
     Indication: Blood pressure measurement

REACTIONS (2)
  - Pulmonary fibrosis [Not Recovered/Not Resolved]
  - Hiatus hernia [Unknown]

NARRATIVE: CASE EVENT DATE: 20200101
